FAERS Safety Report 9832995 (Version 2)
Quarter: 2014Q1

REPORT INFORMATION
  Report Type: Spontaneous
  Country: NO (occurrence: NO)
  Receive Date: 20140121
  Receipt Date: 20140131
  Transmission Date: 20141002
  Serious: Yes (Hospitalization, Other)
  Sender: FDA-Public Use
  Company Number: NO-B.I. PHARMACEUTICALS,INC./RIDGEFIELD-2014-BI-02152NO

PATIENT
  Age: 66 Year
  Sex: Male
  Weight: 100 kg

DRUGS (5)
  1. PRADAXA [Suspect]
     Indication: THROMBOSIS PROPHYLAXIS
     Dosage: 220 MG
     Route: 048
     Dates: start: 20131127, end: 20131227
  2. AZARGA / TIMOLOL, COMBINATIONS [Concomitant]
     Dosage: GTT DROP, BOTH EYES
     Route: 031
  3. ALPHAGAN / BRIMONIDINE [Concomitant]
     Dosage: GTT DROP, LEFT EYE
     Route: 031
  4. ZYRTEC / CETIRIZINE [Concomitant]
     Dosage: 10 MG
     Route: 048
  5. TRAVATAN / TRAVOPROST [Concomitant]
     Dosage: GTT DROP, BOTH EYES
     Route: 031

REACTIONS (2)
  - Deep vein thrombosis [Not Recovered/Not Resolved]
  - Drug ineffective [Not Recovered/Not Resolved]
